FAERS Safety Report 10544857 (Version 2)
Quarter: 2014Q4

REPORT INFORMATION
  Report Type: Report from Study
  Country: BR (occurrence: BR)
  Receive Date: 20141027
  Receipt Date: 20141027
  Transmission Date: 20150529
  Serious: Yes (Other)
  Sender: FDA-Public Use
  Company Number: PHHY2014BR111419

PATIENT
  Age: 89 Year
  Sex: Male

DRUGS (8)
  1. EXELON PATCH [Suspect]
     Active Substance: RIVASTIGMINE
     Dosage: 9.5 MG, QD (PATCH 10 CM2)
     Route: 062
  2. CYSTINE [Concomitant]
     Active Substance: CYSTINE
     Indication: DEMENTIA ALZHEIMER^S TYPE
     Dosage: 2 DF, QD (1 TABLET AFTER BREAKFAST AND DINNER)
     Route: 065
  3. VINPOCETINE [Concomitant]
     Active Substance: VINPOCETINE
     Indication: DEMENTIA ALZHEIMER^S TYPE
     Dosage: 2 DF, QD (1 TABLET AFTER BREAKFAST AND DINNER)
     Route: 065
  4. DEOCIL [Concomitant]
     Indication: PAIN
     Dosage: 2 OR 3 DF, QD
     Route: 060
  5. MEMANTINE [Concomitant]
     Active Substance: MEMANTINE
     Indication: DEMENTIA ALZHEIMER^S TYPE
     Dosage: 2 DF, QD (1 TABLET AFTER BREAKFAST AND DINNER)
     Route: 065
  6. EXELON PATCH [Suspect]
     Active Substance: RIVASTIGMINE
     Indication: DEMENTIA ALZHEIMER^S TYPE
     Dosage: 4.6 MG, QD (PATCH 5 CM2)
     Route: 062
     Dates: start: 201405
  7. RISPERIDONE. [Concomitant]
     Active Substance: RISPERIDONE
     Indication: ANXIETY
     Dosage: 2 MG, UNK
     Route: 065
     Dates: start: 201404
  8. RISPERIDONE. [Concomitant]
     Active Substance: RISPERIDONE
     Indication: INSOMNIA

REACTIONS (9)
  - Weight increased [Not Recovered/Not Resolved]
  - Head injury [Unknown]
  - Abnormal behaviour [Unknown]
  - Blood glucose increased [Recovering/Resolving]
  - Movement disorder [Recovering/Resolving]
  - Agitation [Recovering/Resolving]
  - Pain in extremity [Recovering/Resolving]
  - Fall [Unknown]
  - Disorientation [Recovering/Resolving]

NARRATIVE: CASE EVENT DATE: 201405
